FAERS Safety Report 6840646-4 (Version None)
Quarter: 2010Q3

REPORT INFORMATION
  Report Type: 
  Country: None (occurrence: None)
  Receive Date: 20100714
  Receipt Date: 20100706
  Transmission Date: 20110219
  Serious: Yes (Hospitalization, Disabling)
  Sender: FDA-Public Use
  Company Number: FR-WYE-H16083610

PATIENT
  Age: 76 Year
  Sex: Female

DRUGS (9)
  1. CORDARONE [Suspect]
     Indication: ATRIAL FIBRILLATION
     Route: 048
  2. RISPERDAL [Concomitant]
     Dosage: DOSE UNKNOWN
     Route: 065
  3. PAROXETINE HCL [Concomitant]
     Route: 065
  4. MAGNESIUM TRISILICATE [Concomitant]
     Dosage: DOSE UNKNOWN
     Route: 065
  5. NOCTRAN 10 [Concomitant]
     Dosage: DOSE UNKNOWN
     Route: 065
  6. CERIS [Concomitant]
     Dosage: 20 MG, FREQUENCY UNSPECIFIED
     Route: 065
  7. GAVISCON [Concomitant]
     Dosage: DOSE UNKNOWN
     Route: 065
  8. COVERSYL [Concomitant]
     Route: 065
  9. PREVISCAN [Suspect]
     Indication: ATRIAL FIBRILLATION
     Route: 048
     Dates: end: 20090101

REACTIONS (5)
  - HYPERTROPHY [None]
  - INTERNATIONAL NORMALISED RATIO INCREASED [None]
  - INTRACRANIAL HAEMATOMA [None]
  - RENAL CYST [None]
  - SPINAL CORD COMPRESSION [None]
